FAERS Safety Report 7386182-0 (Version None)
Quarter: 2011Q1

REPORT INFORMATION
  Report Type: 
  Country: None (occurrence: None)
  Receive Date: 20110331
  Receipt Date: 20110317
  Transmission Date: 20110831
  Serious: Yes (Other)
  Sender: FDA-Public Use
  Company Number: IE-JNJFOC-20110307740

PATIENT
  Age: 49 Year
  Sex: Male

DRUGS (1)
  1. REMICADE [Suspect]
     Indication: PSORIATIC ARTHROPATHY
     Dosage: EVERY 2 MONTHS
     Route: 042

REACTIONS (5)
  - INFUSION RELATED REACTION [None]
  - HEART RATE INCREASED [None]
  - HYPERHIDROSIS [None]
  - PRURITUS GENERALISED [None]
  - BLOOD PRESSURE DECREASED [None]
